FAERS Safety Report 26123794 (Version 3)
Quarter: 2025Q4

REPORT INFORMATION
  Report Type: Report from Study
  Country: CN (occurrence: None)
  Receive Date: 20251205
  Receipt Date: 20251218
  Transmission Date: 20260118
  Serious: Yes (Hospitalization)
  Sender: JIANGSU HANSOH PHARMACEUTICAL GROUP CO., LTD.
  Company Number: CN-Hansoh-20252190022638

PATIENT
  Age: 55 Year
  Sex: Male
  Weight: 75 kg

DRUGS (4)
  1. PEMETREXED DISODIUM [Suspect]
     Active Substance: PEMETREXED DISODIUM
     Indication: Non-small cell lung cancer
     Dosage: 800 MG
     Dates: start: 20220922, end: 20241128
  2. PEMETREXED DISODIUM [Suspect]
     Active Substance: PEMETREXED DISODIUM
     Dosage: 600MG,QD
     Dates: start: 20241226, end: 20251030
  3. CISPLATIN [Suspect]
     Active Substance: CISPLATIN
     Indication: Non-small cell lung cancer
     Dosage: 120 MG
     Dates: start: 20220922, end: 20220922
  4. AUMOLERTINIB [Suspect]
     Active Substance: AUMOLERTINIB
     Indication: Non-small cell lung cancer
     Dosage: 110 MG, QD
     Route: 048
     Dates: start: 20220921

REACTIONS (1)
  - Hepatic function abnormal [Recovered/Resolved]

NARRATIVE: CASE EVENT DATE: 20251126
